FAERS Safety Report 8016461 (Version 3)
Quarter: 2013Q4

REPORT INFORMATION
  Report Type: Spontaneous
  Country: US (occurrence: US)
  Receive Date: 20110630
  Receipt Date: 20131114
  Transmission Date: 20140711
  Serious: Yes (Other)
  Sender: FDA-Public Use
  Company Number: US-BAYER-2011-055313

PATIENT
  Age: 29 Year
  Sex: Female
  Weight: 72.56 kg

DRUGS (6)
  1. OCELLA [Suspect]
     Indication: PRODUCT USED FOR UNKNOWN INDICATION
     Dosage: UNK
     Dates: start: 2008, end: 2009
  2. NEXIUM [Concomitant]
     Dosage: 40 MG/24HR, UNK
     Route: 048
     Dates: start: 200908
  3. AMITIZA [Concomitant]
     Dosage: 8 ?G, BID
     Route: 048
  4. POLYETHYLENE GLYCOL [Concomitant]
     Dosage: 17 G, DAILY
     Route: 048
     Dates: start: 200908
  5. PHENYLEPHRINE [Concomitant]
     Dosage: 1 TABLET
     Route: 048
     Dates: start: 200908
  6. DEXCHLORPHENIRAMINE [Concomitant]
     Dosage: 1 TABLET
     Route: 048
     Dates: start: 200908

REACTIONS (4)
  - Cholecystitis acute [None]
  - Gallbladder disorder [None]
  - Injury [None]
  - Pain [None]
